FAERS Safety Report 6936096-2 (Version None)
Quarter: 2010Q3

REPORT INFORMATION
  Report Type: 
  Country: None (occurrence: None)
  Receive Date: 20100823
  Receipt Date: 20100812
  Transmission Date: 20110219
  Serious: Yes (Death, Other)
  Sender: FDA-Public Use
  Company Number: AR-NOVOPROD-312545

PATIENT
  Age: 12 Year
  Sex: Male
  Weight: 24 kg

DRUGS (4)
  1. NOVOSEVEN RT [Suspect]
     Indication: HAEMOPHILIA A WITH ANTI FACTOR VIII
     Dosage: 90 UG/KG 4-12 DOSE DAILY
  2. METILPREDNISOLONA                  /00049601/ [Concomitant]
     Indication: IMMUNOSUPPRESSION
     Dosage: 2 MG/KG, UNK
  3. TACROLIMUS [Concomitant]
     Indication: IMMUNOSUPPRESSION
  4. MICOFENOLATO MOFETIL G [Concomitant]
     Indication: IMMUNOSUPPRESSION

REACTIONS (2)
  - RENAL FAILURE ACUTE [None]
  - RETROPERITONEAL HAEMATOMA [None]
